FAERS Safety Report 9704696 (Version 3)
Quarter: 2013Q4

REPORT INFORMATION
  Report Type: Spontaneous
  Country: LB (occurrence: LB)
  Receive Date: 20131122
  Receipt Date: 20131210
  Transmission Date: 20140711
  Serious: Yes (Death)
  Sender: FDA-Public Use
  Company Number: LB-B.I. PHARMACEUTICALS,INC./RIDGEFIELD-2013-BI-38513AE

PATIENT
  Age: 76 Year
  Sex: Male

DRUGS (4)
  1. PRADAXA [Suspect]
     Indication: ATRIAL FIBRILLATION
     Dosage: 300 MG
     Route: 048
     Dates: start: 20131020, end: 20131101
  2. TAVANIC [Concomitant]
     Indication: URINARY TRACT INFECTION
     Route: 048
     Dates: start: 20131020
  3. XARELTO 10 MG [Concomitant]
  4. AMLOR [Concomitant]
     Indication: HYPERTENSION
     Route: 048
     Dates: end: 20130630

REACTIONS (3)
  - Hepatitis [Fatal]
  - Hepatotoxicity [Fatal]
  - Renal failure [Fatal]
